FAERS Safety Report 17941017 (Version 1)
Quarter: 2020Q2

REPORT INFORMATION
  Report Type: Spontaneous
  Country: US (occurrence: US)
  Receive Date: 20200624
  Receipt Date: 20200624
  Transmission Date: 20200714
  Serious: Yes (Other)
  Sender: FDA-Public Use
  Company Number: None

PATIENT
  Age: 36 Year
  Sex: Female
  Weight: 90 kg

DRUGS (9)
  1. MELATONIN 6MG PO QHS PRN [Concomitant]
     Dates: start: 20200612
  2. METHYLPREDNISOLONE 30MG IV Q8H [Concomitant]
     Dates: start: 20200616, end: 20200622
  3. METHYLPREDNISOLONE 30MG IV Q12H [Concomitant]
     Dates: start: 20200623
  4. REMDESIVIR. [Suspect]
     Active Substance: REMDESIVIR
     Indication: COVID-19
     Dosage: ?          OTHER FREQUENCY:200MG D1, 100MG/D;?
     Route: 042
     Dates: start: 20200612, end: 20200617
  5. ACETAMINOPHEN 325MG PO Q6H PAIN 1-3, FEVER [Concomitant]
     Dates: start: 20200612, end: 20200617
  6. KETOROLAC 15MG IV Q6H PRN PAIN 4-6 [Concomitant]
     Dates: start: 20200613, end: 20200618
  7. BENZONATATE 100-200MG PO Q8H [Concomitant]
     Dates: start: 20200612
  8. ENOXAPARIN 30MG SUBQ Q12H [Concomitant]
     Dates: start: 20200613
  9. PROMETHAZINE-CODEINE 6.25/10/5ML PO Q4H PRN [Concomitant]
     Dates: start: 20200613

REACTIONS (2)
  - Platelet count increased [None]
  - Dyspnoea [None]

NARRATIVE: CASE EVENT DATE: 20200617
